FAERS Safety Report 20995454 (Version 1)
Quarter: 2022Q2

REPORT INFORMATION
  Report Type: Report from Study
  Country: FR (occurrence: FR)
  Receive Date: 20220622
  Receipt Date: 20220622
  Transmission Date: 20220721
  Serious: Yes (Hospitalization, Other)
  Sender: FDA-Public Use
  Company Number: FR-JNJFOC-20220617959

PATIENT
  Age: 60 Year
  Sex: Female

DRUGS (20)
  1. VENETOCLAX [Suspect]
     Active Substance: VENETOCLAX
     Indication: Plasma cell myeloma
     Dosage: C1-8 DAYS 1-21, C9 AND BEYOND 35 DAY CYCLE?DAY-1-35
     Route: 048
     Dates: start: 20220228
  2. VENETOCLAX [Suspect]
     Active Substance: VENETOCLAX
     Dosage: C1-8 DAYS 1-21, C9 AND BEYOND 35 DAY CYCLE?DAY-1-35
     Route: 048
     Dates: start: 20170306
  3. VELCADE [Suspect]
     Active Substance: BORTEZOMIB
     Indication: Plasma cell myeloma
     Dosage: C1-8, 21D CYCLE:D1,4,8,+ 11, C9 + ON: 35D CYCLE:D1,8,15 + 22
     Route: 065
     Dates: start: 20170306, end: 20220131
  4. VELCADE [Suspect]
     Active Substance: BORTEZOMIB
     Dosage: C1-8, 21D CYCLE:D1,4,8,+ 11, C9 + ON: 35D CYCLE:D1,8,15 + 22
     Route: 065
     Dates: start: 20220228
  5. DEXAMETHASONE [Suspect]
     Active Substance: DEXAMETHASONE
     Indication: Plasma cell myeloma
     Dosage: C1-8, 21D CYCLE : D1, 2,4,5,8,9 + 11,12?C9 + , 35 D CYCLE : D1,2,8,9,15,16 + 23
     Route: 065
     Dates: start: 20170306, end: 20220201
  6. DEXAMETHASONE [Suspect]
     Active Substance: DEXAMETHASONE
     Dosage: C1-8, 21D CYCLE : D1, 2,4,5,8,9 + 11,12?C9 + , 35 D CYCLE : D1,2,8,9,15,16 + 23
     Route: 065
     Dates: start: 20220228
  7. LEVOTHYROXINE SODIUM [Concomitant]
     Active Substance: LEVOTHYROXINE SODIUM
     Indication: Hypothyroidism
     Dates: start: 201309
  8. ALLOPURINOL [Concomitant]
     Active Substance: ALLOPURINOL
     Indication: Prophylaxis
     Dates: start: 20170227
  9. BACTRIM [Concomitant]
     Active Substance: SULFAMETHOXAZOLE\TRIMETHOPRIM
     Indication: Antibiotic prophylaxis
     Dates: start: 20190307
  10. CHOLECALCIFEROL [Concomitant]
     Active Substance: CHOLECALCIFEROL
     Indication: Antiviral prophylaxis
     Dosage: 1 AMPULLA
     Dates: start: 20180204, end: 20180211
  11. CHOLECALCIFEROL [Concomitant]
     Active Substance: CHOLECALCIFEROL
     Indication: Vitamin D deficiency
     Dosage: 1 AMPULLA
     Dates: start: 20170805, end: 20180203
  12. CHOLECALCIFEROL [Concomitant]
     Active Substance: CHOLECALCIFEROL
     Dosage: 1 AMPULLA
     Dates: start: 20180212
  13. CHOLECALCIFEROL [Concomitant]
     Active Substance: CHOLECALCIFEROL
     Dosage: 1 AMPULLA
     Dates: start: 20170717, end: 20170804
  14. AMOXICILLIN\CLAVULANATE POTASSIUM [Concomitant]
     Active Substance: AMOXICILLIN\CLAVULANATE POTASSIUM
     Indication: Antibiotic prophylaxis
     Dates: start: 20190307
  15. DOLIPRANE [Concomitant]
     Active Substance: ACETAMINOPHEN
     Indication: Injection site pain
     Dates: start: 20170317
  16. DOLIPRANE [Concomitant]
     Active Substance: ACETAMINOPHEN
     Indication: Abdominal pain lower
  17. ZOMETA [Concomitant]
     Active Substance: ZOLEDRONIC ACID
     Indication: Bone disorder
     Dates: start: 20181203
  18. VALACYCLOVIR HYDROCHLORIDE [Concomitant]
     Active Substance: VALACYCLOVIR HYDROCHLORIDE
     Indication: Antiviral prophylaxis
     Dates: start: 20170302
  19. LEUCOVORIN CALCIUM [Concomitant]
     Active Substance: LEUCOVORIN CALCIUM
     Indication: Prophylaxis
     Dates: start: 20190307
  20. MINERAL OIL [Concomitant]
     Active Substance: MINERAL OIL
     Indication: Constipation prophylaxis
     Dosage: 1 TABLESPOON
     Dates: start: 20170330

REACTIONS (2)
  - COVID-19 [Recovered/Resolved]
  - Lymphopenia [Not Recovered/Not Resolved]

NARRATIVE: CASE EVENT DATE: 20211220
